FAERS Safety Report 13910645 (Version 1)
Quarter: 2017Q3

REPORT INFORMATION
  Report Type: Spontaneous
  Country: US (occurrence: US)
  Receive Date: 20170826
  Receipt Date: 20170826
  Transmission Date: 20171127
  Serious: Yes (Other)
  Sender: FDA-Public Use
  Company Number: None

PATIENT
  Age: 58 Year
  Sex: Female
  Weight: 74.25 kg

DRUGS (1)
  1. PREMARIN [Suspect]
     Active Substance: ESTROGENS, CONJUGATED
     Indication: MENOPAUSE
     Dosage: ?          OTHER FREQUENCY:2X WEEK;?
     Route: 067
     Dates: start: 20170715, end: 20170820

REACTIONS (2)
  - Urinary tract infection [None]
  - Vaginal haemorrhage [None]

NARRATIVE: CASE EVENT DATE: 20170724
